FAERS Safety Report 8015571-6 (Version None)
Quarter: 2011Q4

REPORT INFORMATION
  Report Type: 
  Country: None (occurrence: None)
  Receive Date: 20111230
  Receipt Date: 20111220
  Transmission Date: 20120403
  Serious: Yes (Other)
  Sender: FDA-Public Use
  Company Number: JP-ELI_LILLY_AND_COMPANY-JP201111006556

PATIENT
  Sex: Female
  Weight: 47 kg

DRUGS (13)
  1. MUCOSTA [Concomitant]
     Dosage: 300 MG, QD
     Route: 048
  2. KETOPROFEN [Concomitant]
     Dosage: 40 MG, QD
     Route: 062
  3. TOLTERODINE TARTRATE [Concomitant]
     Dosage: 2 MG, UNK
  4. GASTAR [Concomitant]
     Dosage: 20 MG, QD
     Route: 048
  5. TRICHLORMETHIAZIDE [Concomitant]
     Dosage: 2 MG, UNK
     Route: 048
  6. FORTEO [Suspect]
     Indication: OSTEOPOROSIS
     Dosage: 20 UG, QD
     Route: 058
     Dates: start: 20111107, end: 20111114
  7. URSAMIC [Concomitant]
     Dosage: 300 MG, QD
     Route: 048
  8. AMLODIPINE [Concomitant]
     Dosage: 5 MG, QD
     Route: 048
  9. NEXAVAR [Concomitant]
     Dosage: 200 MG, QD
     Route: 048
  10. LOXONIN [Concomitant]
     Dosage: 120 MG, UNK
     Route: 048
  11. LASIX [Concomitant]
     Dosage: 20 MG, QD
     Route: 048
  12. OLMESARTAN MEDOXOMIL [Concomitant]
     Dosage: 20 MG, QD
     Route: 048
  13. EDIROL [Concomitant]
     Dosage: 5 MG, QD
     Route: 048

REACTIONS (3)
  - EPILEPSY [None]
  - FEELING ABNORMAL [None]
  - TRANSIENT ISCHAEMIC ATTACK [None]
